FAERS Safety Report 6831513-0 (Version None)
Quarter: 2010Q3

REPORT INFORMATION
  Report Type: 
  Country: None (occurrence: None)
  Receive Date: 20100712
  Receipt Date: 20100628
  Transmission Date: 20110219
  Serious: Yes (Other)
  Sender: FDA-Public Use
  Company Number: PHHY2010IL41573

PATIENT

DRUGS (2)
  1. GLEEVEC [Suspect]
     Indication: GASTROINTESTINAL STROMAL TUMOUR
     Dosage: UNK
     Route: 048
  2. AMLODIPINE [Interacting]

REACTIONS (4)
  - DRUG INTERACTION [None]
  - NEUROPATHY PERIPHERAL [None]
  - PARAESTHESIA [None]
  - VISUAL ACUITY REDUCED [None]
